FAERS Safety Report 22021771 (Version 1)
Quarter: 2023Q1

REPORT INFORMATION
  Report Type: Spontaneous
  Country: US (occurrence: US)
  Receive Date: 20230222
  Receipt Date: 20230222
  Transmission Date: 20230418
  Serious: Yes (Other)
  Sender: FDA-Public Use
  Company Number: US-BAXTER-2023BAX013291

PATIENT
  Age: 49 Year
  Sex: Female

DRUGS (4)
  1. DOXORUBICIN [Suspect]
     Active Substance: DOXORUBICIN
     Indication: Synovial sarcoma
     Dosage: NEOADJUVANT CHEMORADIATION WITH 3 CYCLES 75 MG/M2
     Route: 065
  2. DOXORUBICIN [Suspect]
     Active Substance: DOXORUBICIN
     Dosage: TWO ADDITIONAL CYCLES OF ADJUVANT DOXORUBICIN AND IFOSFAMIDE POSTOPERATIVELY
     Route: 065
  3. IFOSFAMIDE [Suspect]
     Active Substance: IFOSFAMIDE
     Indication: Synovial sarcoma
     Dosage: NEOADJUVANT CHEMORADIATION WITH 3 CYCLES 10,000 MG/M2
     Route: 065
  4. IFOSFAMIDE [Suspect]
     Active Substance: IFOSFAMIDE
     Dosage: TWO ADDITIONAL CYCLES OF ADJUVANT DOXORUBICIN AND IFOSFAMIDE POSTOPERATIVELY
     Route: 065

REACTIONS (3)
  - Pancytopenia [Unknown]
  - Febrile neutropenia [Unknown]
  - Mucosal inflammation [Unknown]
